FAERS Safety Report 7544958-0 (Version None)
Quarter: 2011Q2

REPORT INFORMATION
  Report Type: 
  Country: None (occurrence: None)
  Receive Date: 20110614
  Receipt Date: 20090807
  Transmission Date: 20111010
  Serious: Yes (Death, Hospitalization, Other)
  Sender: FDA-Public Use
  Company Number: US-BAYER-200928702NA

PATIENT
  Age: 7 Month
  Sex: Male
  Weight: 6 kg

DRUGS (22)
  1. TRASYLOL [Suspect]
     Indication: CARDIAC OPERATION
     Dosage: UNK INITIAL DOSE
     Route: 042
     Dates: start: 20070529, end: 20070529
  2. TRASYLOL [Suspect]
     Indication: PATENT DUCTUS ARTERIOSUS REPAIR
  3. VANCOMYCIN [Concomitant]
     Indication: PRODUCT USED FOR UNKNOWN INDICATION
     Dosage: 90 MG, UNK
     Route: 042
     Dates: start: 20070529
  4. INS [INSULIN] [Concomitant]
     Indication: PRODUCT USED FOR UNKNOWN INDICATION
     Dosage: UNK
     Route: 042
     Dates: start: 20070529
  5. TRASYLOL [Suspect]
     Indication: FALLOT'S TETRALOGY
     Dosage: 300 ML, UNK
     Route: 042
     Dates: start: 20070529, end: 20070529
  6. MILRINONE [Concomitant]
     Indication: PRODUCT USED FOR UNKNOWN INDICATION
     Dosage: 0.5 MICROGRAMS/KILOGRAM/MINUTE, UNK
     Route: 042
     Dates: start: 20070529
  7. HEPARIN [Concomitant]
     Indication: PRODUCT USED FOR UNKNOWN INDICATION
     Dosage: 2500 U, UNK
     Route: 042
     Dates: start: 20070529
  8. INDERAL [Concomitant]
     Indication: PRODUCT USED FOR UNKNOWN INDICATION
     Dosage: 2 MG PER KILOGRAM, QD
     Route: 048
  9. RED BLOOD CELLS [Concomitant]
     Indication: PRODUCT USED FOR UNKNOWN INDICATION
     Dosage: UNK
     Route: 042
     Dates: start: 20070529
  10. TRASYLOL [Suspect]
     Indication: ATRIAL SEPTAL DEFECT REPAIR
     Dosage: 300 KALLIKREIN INHIBITOR UNITS/HOUR FOR TOTAL DOSE OF 46 OR 86 CC
     Route: 042
     Dates: start: 20070529, end: 20070529
  11. PROPRANOLOL [Concomitant]
     Indication: PRODUCT USED FOR UNKNOWN INDICATION
     Dosage: 3 MG, TID
     Route: 048
     Dates: start: 20070308
  12. PROTAMINE SULFATE [Concomitant]
     Indication: PRODUCT USED FOR UNKNOWN INDICATION
     Dosage: 40 MG, UNK
     Route: 042
     Dates: start: 20070529
  13. VERSED [Concomitant]
     Dosage: UNK
     Route: 042
     Dates: start: 20070529
  14. SOLU-MEDROL [Concomitant]
     Indication: PRODUCT USED FOR UNKNOWN INDICATION
     Dosage: 125 MG, UNK
     Route: 042
     Dates: start: 20070529
  15. ZEMURON [Concomitant]
     Indication: PRODUCT USED FOR UNKNOWN INDICATION
     Dosage: 6/ 6/ 6 MG, UNK
     Route: 042
     Dates: start: 20070529
  16. CRYOPRECIPITATES [Concomitant]
     Indication: PRODUCT USED FOR UNKNOWN INDICATION
     Dosage: 40 ML, UNK
     Route: 042
     Dates: start: 20070529
  17. TRASYLOL [Suspect]
  18. TISSEEL KIT [Concomitant]
     Indication: PRODUCT USED FOR UNKNOWN INDICATION
     Dosage: UNK
     Dates: start: 20070529
  19. IRON [CITRIC ACID,FERROUS SULFATE] [Concomitant]
     Indication: PRODUCT USED FOR UNKNOWN INDICATION
     Route: 048
  20. FENTANYL [Concomitant]
     Indication: PRODUCT USED FOR UNKNOWN INDICATION
     Dosage: UNK
     Route: 042
     Dates: start: 20070529
  21. PLATELETS [Concomitant]
     Indication: PRODUCT USED FOR UNKNOWN INDICATION
     Dosage: 80 ML, UNK
     Route: 042
     Dates: start: 20070529
  22. TRASYLOL [Suspect]
     Indication: TRANSPOSITION OF THE GREAT VESSELS

REACTIONS (11)
  - EMOTIONAL DISTRESS [None]
  - RENAL FAILURE [None]
  - FEAR [None]
  - CARDIOGENIC SHOCK [None]
  - PAIN [None]
  - DEATH [None]
  - ANXIETY [None]
  - DEPRESSION [None]
  - INJURY [None]
  - RENAL FAILURE CHRONIC [None]
  - COAGULOPATHY [None]
